FAERS Safety Report 5911134-4 (Version None)
Quarter: 2008Q4

REPORT INFORMATION
  Report Type: 
  Country: None (occurrence: None)
  Receive Date: 20081007
  Receipt Date: 20080222
  Transmission Date: 20090506
  Serious: No
  Sender: FDA-Public Use
  Company Number: US-BRISTOL-MYERS SQUIBB COMPANY-14087894

PATIENT
  Age: 55 Year
  Sex: Male

DRUGS (2)
  1. AVAPRO [Suspect]
  2. CLARINEX [Concomitant]

REACTIONS (1)
  - HEART RATE IRREGULAR [None]
